FAERS Safety Report 5504593-2 (Version None)
Quarter: 2007Q4

REPORT INFORMATION
  Report Type: 
  Country: None (occurrence: None)
  Receive Date: 20071101
  Receipt Date: 20071025
  Transmission Date: 20080405
  Serious: Yes (Hospitalization)
  Sender: FDA-Public Use
  Company Number: US-ROXANE LABORATORIES, INC-2007-BP-23473RO

PATIENT
  Age: 4 Year
  Sex: Male
  Weight: 18 kg

DRUGS (6)
  1. OXCARBAZEPINE [Suspect]
     Indication: CONVULSION
     Route: 048
  2. CEFTRIAXONE [Concomitant]
     Route: 042
  3. EPINEPHRINE [Concomitant]
     Route: 055
  4. DEXAMETHASONE 0.5MG TAB [Concomitant]
     Route: 042
  5. DIPHENHYDRAMINE HCL [Concomitant]
  6. PREDNISOLONE [Concomitant]

REACTIONS (8)
  - ANGIOEDEMA [None]
  - DROOLING [None]
  - DYSPNOEA [None]
  - PYREXIA [None]
  - STRIDOR [None]
  - SWELLING FACE [None]
  - TACHYCARDIA [None]
  - TACHYPNOEA [None]
